FAERS Safety Report 20179125 (Version 1)
Quarter: 2021Q4

REPORT INFORMATION
  Report Type: Spontaneous
  Country: CA (occurrence: CA)
  Receive Date: 20211214
  Receipt Date: 20211214
  Transmission Date: 20220303
  Serious: Yes (Other)
  Sender: FDA-Public Use
  Company Number: CA-TEVA-2021-CA-1986482

PATIENT
  Sex: Male

DRUGS (2)
  1. CIPROFLOXACIN HYDROCHLORIDE [Interacting]
     Active Substance: CIPROFLOXACIN HYDROCHLORIDE
     Indication: Urinary retention
     Route: 065
  2. RENVELA [Interacting]
     Active Substance: SEVELAMER CARBONATE
     Route: 048

REACTIONS (2)
  - Urinary retention [Unknown]
  - Drug interaction [Unknown]
